FAERS Safety Report 22612292 (Version 1)
Quarter: 2023Q2

REPORT INFORMATION
  Report Type: Spontaneous
  Country: US (occurrence: US)
  Receive Date: 20230617
  Receipt Date: 20230617
  Transmission Date: 20230722
  Serious: Yes (Hospitalization, Other)
  Sender: FDA-Public Use
  Company Number: US-MACLEODS PHARMACEUTICALS US LTD-MAC2023041186

PATIENT

DRUGS (10)
  1. OLANZAPINE [Suspect]
     Active Substance: OLANZAPINE
     Indication: Schizophrenia
     Dosage: 20 MILLIGRAM, QD
     Route: 065
     Dates: start: 2002
  2. OLANZAPINE [Suspect]
     Active Substance: OLANZAPINE
     Dosage: 15 MILLIGRAM, QD (STOP DATE: IN 2022)
     Route: 030
     Dates: start: 2002, end: 2022
  3. OLANZAPINE [Suspect]
     Active Substance: OLANZAPINE
     Dosage: 2.5 MILLIGRAM, TID (7.5 MG/DAY, ORAL DISSOLVING TABLETS)) (STOP DATE: 2022), ORAL DISSOLVING TABLETS
     Route: 048
     Dates: end: 2022
  4. MEROPENEM [Suspect]
     Active Substance: MEROPENEM
     Indication: Septic shock
     Dosage: UNK
     Route: 065
     Dates: start: 2022
  5. MEROPENEM [Suspect]
     Active Substance: MEROPENEM
     Indication: Colitis
  6. MEROPENEM [Suspect]
     Active Substance: MEROPENEM
     Indication: Prostatic abscess
  7. VALPROIC ACID [Concomitant]
     Active Substance: VALPROIC ACID
     Indication: Schizophrenia
     Dosage: UNK
     Route: 065
     Dates: start: 2015
  8. FOSFOMYCIN [Concomitant]
     Active Substance: FOSFOMYCIN
     Indication: Septic shock
     Dosage: UNK
     Route: 065
  9. FOSFOMYCIN [Concomitant]
     Active Substance: FOSFOMYCIN
     Indication: Colitis
  10. FOSFOMYCIN [Concomitant]
     Active Substance: FOSFOMYCIN
     Indication: Prostatic abscess

REACTIONS (3)
  - Rash morbilliform [Recovered/Resolved]
  - Exfoliative rash [Recovered/Resolved]
  - Agranulocytosis [Recovered/Resolved]
